FAERS Safety Report 4394883-1 (Version None)
Quarter: 2004Q3

REPORT INFORMATION
  Report Type: 
  Country: None (occurrence: None)
  Receive Date: 20040706
  Receipt Date: 20040622
  Transmission Date: 20050211
  Serious: Yes (Hospitalization)
  Sender: FDA-Public Use
  Company Number: 04P-056-0264709-00

PATIENT
  Age: 53 Year
  Sex: Female

DRUGS (5)
  1. DEPAKENE [Suspect]
     Indication: BIPOLAR DISORDER
     Dosage: 500 MG, 2 IN 1 D, PER ORAL
     Route: 048
     Dates: end: 20040421
  2. DEPAKOTE [Suspect]
     Indication: BIPOLAR DISORDER
     Dosage: 500 MG, 2 IN 1 D, PER ORAL
     Route: 048
     Dates: start: 20040421, end: 20040429
  3. LITHIUM CARBONATE [Suspect]
     Indication: BIPOLAR DISORDER
     Dosage: PER ORAL
     Route: 048
     Dates: start: 19900101, end: 20040429
  4. PROPRANOLOL [Concomitant]
  5. LEVOTHYROXINE SODIUM [Concomitant]

REACTIONS (5)
  - ALANINE AMINOTRANSFERASE [None]
  - ANAEMIA MACROCYTIC [None]
  - DIABETES INSIPIDUS [None]
  - NEPHRITIS INTERSTITIAL [None]
  - RENAL FAILURE [None]
